FAERS Safety Report 21197162 (Version 1)
Quarter: 2022Q3

REPORT INFORMATION
  Report Type: Report from Study
  Country: DE (occurrence: DE)
  Receive Date: 20220810
  Receipt Date: 20220810
  Transmission Date: 20221027
  Serious: Yes (Hospitalization, Other)
  Sender: FDA-Public Use
  Company Number: DE-EXELIXIS-XL18421045534

PATIENT
  Age: 45 Year
  Sex: Male
  Weight: 98.4 kg

DRUGS (4)
  1. CABOZANTINIB [Suspect]
     Active Substance: CABOZANTINIB
     Indication: Renal cell carcinoma
     Dosage: THE MOST RECENT DOSE WAS RECEIVED ON 19-OCT-2021, PRIOR TO THE EVENT ONSET
     Route: 048
     Dates: start: 20201014
  2. IPILIMUMAB [Suspect]
     Active Substance: IPILIMUMAB
     Indication: Renal cell carcinoma
     Dosage: THE MOST RECENT DOSE WAS RECEIVED ON 17-DEC-2020, PRIOR TO THE EVENT ONSET
     Route: 042
     Dates: start: 20201014
  3. LEVOTHYROXINE [Concomitant]
     Active Substance: LEVOTHYROXINE
     Indication: Product used for unknown indication
     Dosage: UNKNOWN
     Route: 065
  4. PANTOZOL [ERYTHROMYCIN ETHYLSUCCINATE;SULFAFURAZOLE] [Concomitant]
     Indication: Product used for unknown indication
     Dosage: UNKNOWN
     Route: 065

REACTIONS (1)
  - Autoimmune lung disease [Recovered/Resolved]

NARRATIVE: CASE EVENT DATE: 20211020
